FAERS Safety Report 12714452 (Version 1)
Quarter: 2016Q3

REPORT INFORMATION
  Report Type: Spontaneous
  Country: US (occurrence: US)
  Receive Date: 20160905
  Receipt Date: 20160905
  Transmission Date: 20161109
  Serious: No
  Sender: FDA-Public Use
  Company Number: US-JAZZ-2016-US-008715

PATIENT
  Sex: Female

DRUGS (23)
  1. NORETHINDRONE. [Concomitant]
     Active Substance: NORETHINDRONE
  2. XYREM [Suspect]
     Active Substance: SODIUM OXYBATE
     Indication: NARCOLEPSY
     Dosage: 2.25 G, BID
     Route: 048
     Dates: start: 201402, end: 201403
  3. XYREM [Suspect]
     Active Substance: SODIUM OXYBATE
     Dosage: 4.5 G, BID
     Route: 048
     Dates: start: 201511
  4. GABAPENTIN. [Concomitant]
     Active Substance: GABAPENTIN
  5. DEXEDRINE [Concomitant]
     Active Substance: DEXTROAMPHETAMINE SULFATE
  6. ADDERALL [Concomitant]
     Active Substance: AMPHETAMINE ASPARTATE\AMPHETAMINE SULFATE\DEXTROAMPHETAMINE SACCHARATE\DEXTROAMPHETAMINE SULFATE
  7. TRAZODONE HYDROCHLORIDE. [Concomitant]
     Active Substance: TRAZODONE HYDROCHLORIDE
  8. MAXALT [Concomitant]
     Active Substance: RIZATRIPTAN BENZOATE
  9. NAPROXEN. [Concomitant]
     Active Substance: NAPROXEN
  10. TROKENDI [Concomitant]
     Active Substance: TOPIRAMATE
  11. PROZAC [Concomitant]
     Active Substance: FLUOXETINE HYDROCHLORIDE
  12. LOESTRIN NOS [Concomitant]
     Active Substance: ETHINYL ESTRADIOL\NORETHINDRONE ACETATE
  13. BIOTIN [Concomitant]
     Active Substance: BIOTIN
  14. KLONOPIN [Concomitant]
     Active Substance: CLONAZEPAM
  15. VITAMIN C [Concomitant]
     Active Substance: ASCORBIC ACID
  16. VITAMIN B12 [Concomitant]
     Active Substance: CYANOCOBALAMIN
  17. XYREM [Suspect]
     Active Substance: SODIUM OXYBATE
     Indication: CATAPLEXY
     Dosage: DOSE ADJUSTMENT
     Route: 048
  18. TOPAMAX [Concomitant]
     Active Substance: TOPIRAMATE
  19. PRENATAL [Concomitant]
     Active Substance: VITAMINS
  20. VITAMIN D [Concomitant]
     Active Substance: CHOLECALCIFEROL
  21. IBUPROFEN. [Concomitant]
     Active Substance: IBUPROFEN
  22. RITALIN [Concomitant]
     Active Substance: METHYLPHENIDATE HYDROCHLORIDE
  23. ST. JOHN^S WORT [Concomitant]
     Active Substance: ST. JOHN^S WORT

REACTIONS (2)
  - Intentional product misuse [Unknown]
  - Therapeutic response decreased [Unknown]
